FAERS Safety Report 10656556 (Version 3)
Quarter: 2015Q2

REPORT INFORMATION
  Report Type: Report from Study
  Country: GB (occurrence: GB)
  Receive Date: 20141216
  Receipt Date: 20150402
  Transmission Date: 20150821
  Serious: Yes (Hospitalization, Other)
  Sender: FDA-Public Use
  Company Number: GB-BRISTOL-MYERS SQUIBB COMPANY-BMS-2014-000098

PATIENT
  Sex: Male

DRUGS (1)
  1. ABATACEPT [Suspect]
     Active Substance: ABATACEPT
     Indication: PRODUCT USED FOR UNKNOWN INDICATION
     Dosage: 125 MG, QWK
     Route: 058
     Dates: start: 20130725

REACTIONS (6)
  - Fall [Unknown]
  - Blood pressure decreased [Unknown]
  - Transient ischaemic attack [Unknown]
  - Skeletal injury [Unknown]
  - Nerve injury [Unknown]
  - Cerebrovascular accident [Unknown]
